FAERS Safety Report 7455924-8 (Version None)
Quarter: 2011Q2

REPORT INFORMATION
  Report Type: 
  Country: None (occurrence: None)
  Receive Date: 20110503
  Receipt Date: 20110427
  Transmission Date: 20111010
  Serious: Yes (Other)
  Sender: FDA-Public Use
  Company Number: CN-PFIZER INC-2011085890

PATIENT
  Age: 50 Year
  Sex: Female

DRUGS (2)
  1. VFEND [Suspect]
     Dosage: 200 MG, 1X/DAY
     Route: 048
  2. VORICONAZOLE [Suspect]

REACTIONS (3)
  - CARDIAC FUNCTION TEST ABNORMAL [None]
  - DYSPNOEA [None]
  - FACE OEDEMA [None]
